FAERS Safety Report 8229029-2 (Version None)
Quarter: 2012Q1

REPORT INFORMATION
  Report Type: 
  Country: None (occurrence: None)
  Receive Date: 20120322
  Receipt Date: 20120314
  Transmission Date: 20120608
  Serious: Yes (Other)
  Sender: FDA-Public Use
  Company Number: JP-BAYER-2012-027744

PATIENT
  Sex: Female
  Weight: 3 kg

DRUGS (2)
  1. ANTIHEMOPHILIC FACTOR (HUMAN) [Suspect]
     Route: 064
  2. ANTIHEMOPHILIC FACTOR (HUMAN) [Suspect]
     Route: 064

REACTIONS (1)
  - VON WILLEBRAND'S DISEASE [None]
